FAERS Safety Report 13723960 (Version 2)
Quarter: 2017Q4

REPORT INFORMATION
  Report Type: Spontaneous
  Country: US (occurrence: US)
  Receive Date: 20170706
  Receipt Date: 20171005
  Transmission Date: 20180320
  Serious: No
  Sender: FDA-Public Use
  Company Number: US-JNJFOC-20170614141

PATIENT
  Age: 67 Year
  Sex: Female
  Weight: 74.84 kg

DRUGS (3)
  1. LOTRONEX [Concomitant]
     Active Substance: ALOSETRON HYDROCHLORIDE
     Route: 065
  2. IMODIUM MULTI-SYMPTOM RELIEF [Suspect]
     Active Substance: DIMETHICONE\LOPERAMIDE HYDROCHLORIDE
     Route: 048
  3. IMODIUM MULTI-SYMPTOM RELIEF [Suspect]
     Active Substance: DIMETHICONE\LOPERAMIDE HYDROCHLORIDE
     Indication: DIARRHOEA
     Route: 048

REACTIONS (3)
  - Foreign body in respiratory tract [Unknown]
  - Drug ineffective [Unknown]
  - Product packaging issue [Unknown]
